FAERS Safety Report 14873124 (Version 1)
Quarter: 2018Q2

REPORT INFORMATION
  Report Type: Spontaneous
  Country: DE (occurrence: DE)
  Receive Date: 20180510
  Receipt Date: 20180510
  Transmission Date: 20180711
  Serious: Yes (Other)
  Sender: FDA-Public Use
  Company Number: DE-AUROBINDO-AUR-APL-2018-024742

PATIENT
  Age: 32 Year
  Sex: Male

DRUGS (2)
  1. PROPECIA [Suspect]
     Active Substance: FINASTERIDE
     Indication: ALOPECIA
     Dosage: 1 MG, QD
     Route: 048
     Dates: start: 201501, end: 201511
  2. FINASTERIDE. [Suspect]
     Active Substance: FINASTERIDE
     Indication: PRODUCT USED FOR UNKNOWN INDICATION
     Dosage: UNK ()
     Route: 065
     Dates: start: 201406, end: 20141001

REACTIONS (29)
  - Testicular pain [Unknown]
  - Anhedonia [Unknown]
  - Mood swings [Unknown]
  - Listless [Unknown]
  - Loss of libido [Unknown]
  - Sexual dysfunction [Unknown]
  - Apathy [Unknown]
  - Urinary incontinence [Unknown]
  - Prostatic disorder [Unknown]
  - Hyperhidrosis [Unknown]
  - Dyspepsia [Unknown]
  - Sleep disorder [Unknown]
  - Panic attack [Unknown]
  - Erectile dysfunction [Unknown]
  - Penile size reduced [Unknown]
  - Penile pain [Unknown]
  - Hypohidrosis [Unknown]
  - Fatigue [Unknown]
  - Prostatic pain [Unknown]
  - Suicidal ideation [Unknown]
  - Semen viscosity decreased [Unknown]
  - Scrotal disorder [Unknown]
  - Anorgasmia [Unknown]
  - Semen volume decreased [Unknown]
  - Memory impairment [Unknown]
  - Depression [Unknown]
  - Anxiety [Unknown]
  - Reading disorder [Unknown]
  - Pollakiuria [Unknown]
